FAERS Safety Report 26026509 (Version 1)
Quarter: 2025Q4

REPORT INFORMATION
  Report Type: Spontaneous
  Country: US (occurrence: US)
  Receive Date: 20251111
  Receipt Date: 20251111
  Transmission Date: 20260117
  Serious: No
  Sender: SANOFI AVENTIS
  Company Number: US-SA-2025SA333172

PATIENT
  Sex: Male
  Weight: 106.82 kg

DRUGS (11)
  1. DUPIXENT [Suspect]
     Active Substance: DUPILUMAB
     Indication: Nasal polyps
     Dosage: 300 MG, QOW
     Route: 058
  2. OPDIVO [Concomitant]
     Active Substance: NIVOLUMAB
  3. AMOXICILLIN [Concomitant]
     Active Substance: AMOXICILLIN
  4. PREVACID [Concomitant]
     Active Substance: LANSOPRAZOLE
  5. ACYCLOVIR [Concomitant]
     Active Substance: ACYCLOVIR
  6. ROSUVASTATIN CALCIUM [Concomitant]
     Active Substance: ROSUVASTATIN CALCIUM
  7. METOPROLOL SUCCINATE [Concomitant]
     Active Substance: METOPROLOL SUCCINATE
  8. FUROSEMIDE [Concomitant]
     Active Substance: FUROSEMIDE
  9. CITALOPRAM HYDROBROMIDE [Concomitant]
     Active Substance: CITALOPRAM HYDROBROMIDE
  10. TICAGRELOR [Concomitant]
     Active Substance: TICAGRELOR
  11. ASPIRIN [Concomitant]
     Active Substance: ASPIRIN

REACTIONS (1)
  - Nasopharyngitis [Unknown]
